FAERS Safety Report 9542984 (Version 2)
Quarter: 2014Q2

REPORT INFORMATION
  Report Type: Spontaneous
  Country: JP (occurrence: JP)
  Receive Date: 20130923
  Receipt Date: 20140416
  Transmission Date: 20141212
  Serious: No
  Sender: FDA-Public Use
  Company Number: JP-JNJFOC-20130911106

PATIENT
  Age: 9 Decade
  Sex: 0

DRUGS (2)
  1. DUROTEP MT [Suspect]
     Indication: CANCER PAIN
     Route: 062
     Dates: start: 20130901
  2. DUROTEP MT [Suspect]
     Indication: CANCER PAIN
     Route: 062
     Dates: end: 20130831

REACTIONS (2)
  - Application site dermatitis [Recovered/Resolved]
  - Inappropriate schedule of drug administration [Unknown]
